FAERS Safety Report 7053049-7 (Version None)
Quarter: 2010Q4

REPORT INFORMATION
  Report Type: 
  Country: None (occurrence: None)
  Receive Date: 20101020
  Receipt Date: 20101015
  Transmission Date: 20110411
  Serious: Yes (Other)
  Sender: FDA-Public Use
  Company Number: US-ASTRAZENECA-2007UW12102

PATIENT
  Age: 608 Month
  Sex: Male
  Weight: 104.3 kg

DRUGS (31)
  1. SEROQUEL [Suspect]
     Indication: INSOMNIA
     Dosage: 200 MG TO 300 MG
     Route: 048
     Dates: start: 20020101, end: 20030101
  2. SEROQUEL [Suspect]
     Indication: DEPRESSION
     Dosage: 200 MG TO 300 MG
     Route: 048
     Dates: start: 20020101, end: 20030101
  3. SEROQUEL [Suspect]
     Indication: SCHIZOPHRENIA
     Dosage: 200 MG TO 300 MG
     Route: 048
     Dates: start: 20020101, end: 20030101
  4. SEROQUEL [Suspect]
     Indication: BIPOLAR DISORDER
     Dosage: 200 MG TO 300 MG
     Route: 048
     Dates: start: 20020101, end: 20030101
  5. SEROQUEL [Suspect]
     Route: 048
     Dates: start: 20020701, end: 20030630
  6. SEROQUEL [Suspect]
     Route: 048
     Dates: start: 20020701, end: 20030630
  7. SEROQUEL [Suspect]
     Route: 048
     Dates: start: 20020701, end: 20030630
  8. SEROQUEL [Suspect]
     Route: 048
     Dates: start: 20020701, end: 20030630
  9. SEROQUEL [Suspect]
     Route: 048
     Dates: start: 20020828, end: 20030630
  10. SEROQUEL [Suspect]
     Route: 048
     Dates: start: 20020828, end: 20030630
  11. SEROQUEL [Suspect]
     Route: 048
     Dates: start: 20020828, end: 20030630
  12. SEROQUEL [Suspect]
     Route: 048
     Dates: start: 20020828, end: 20030630
  13. SEROQUEL [Suspect]
     Route: 048
     Dates: start: 20020828, end: 20021217
  14. SEROQUEL [Suspect]
     Route: 048
     Dates: start: 20020828, end: 20021217
  15. SEROQUEL [Suspect]
     Route: 048
     Dates: start: 20020828, end: 20021217
  16. SEROQUEL [Suspect]
     Route: 048
     Dates: start: 20020828, end: 20021217
  17. ZYPREXA [Concomitant]
     Indication: DEPRESSION
     Dates: start: 20000101, end: 20010101
  18. ZYPREXA [Concomitant]
     Indication: SCHIZOPHRENIA
     Dates: start: 20000101, end: 20010101
  19. ZYPREXA [Concomitant]
     Dosage: 5 TO 15 MG
     Dates: start: 20010101, end: 20020501
  20. ZYPREXA [Concomitant]
     Dosage: 5 TO 15 MG
     Dates: start: 20010101, end: 20020501
  21. RISPERDAL [Concomitant]
     Indication: DEPRESSION
     Dates: start: 20030101, end: 20070101
  22. RISPERDAL [Concomitant]
     Indication: SCHIZOPHRENIA
     Dates: start: 20030101, end: 20070101
  23. RISPERDAL [Concomitant]
     Indication: BIPOLAR DISORDER
     Dates: start: 20030101, end: 20070101
  24. LOVASTATIN [Concomitant]
     Indication: BLOOD CHOLESTEROL
     Route: 048
     Dates: start: 20020912
  25. METFORMIN HCL [Concomitant]
     Indication: DIABETES MELLITUS
     Route: 048
     Dates: start: 20020903
  26. ALBUTEROL / IPRATROP [Concomitant]
     Indication: ASTHMA
     Dosage: 90 / 18 MCG- 2 PUFFS FOUR TIMES A  DAY
     Route: 048
     Dates: start: 20000605
  27. ABILIFY [Concomitant]
     Dates: start: 20020701, end: 20030601
  28. DIAZEPAM [Concomitant]
     Dates: start: 20030917, end: 20060101
  29. WELLBUTRIN [Concomitant]
     Dates: start: 20060101
  30. XANAX [Concomitant]
     Dates: start: 20010101, end: 20030101
  31. SERZONE [Concomitant]
     Dates: start: 20010101

REACTIONS (9)
  - BLOOD CHOLESTEROL INCREASED [None]
  - BRONCHITIS [None]
  - DIABETES MELLITUS [None]
  - DIABETIC RETINOPATHY [None]
  - HEADACHE [None]
  - HYPERLIPIDAEMIA [None]
  - OBESITY [None]
  - TESTICULAR PAIN [None]
  - TYPE 2 DIABETES MELLITUS [None]
